FAERS Safety Report 9088627 (Version 5)
Quarter: 2013Q2

REPORT INFORMATION
  Report Type: Report from Study
  Country: GR (occurrence: GR)
  Receive Date: 20130201
  Receipt Date: 20130426
  Transmission Date: 20140414
  Serious: Yes (Hospitalization)
  Sender: FDA-Public Use
  Company Number: GR-BAYER-2013-010027

PATIENT
  Sex: Male
  Weight: 61 kg

DRUGS (2)
  1. REGORAFENIB [Suspect]
     Indication: COLORECTAL CANCER METASTATIC
     Dosage: 160 MG, DAILY
     Route: 048
     Dates: start: 20130103, end: 20130117
  2. REGORAFENIB [Suspect]
     Indication: COLORECTAL CANCER METASTATIC
     Dosage: 120 MG, UNK
     Route: 048
     Dates: start: 20130208, end: 20130215

REACTIONS (2)
  - Haemolysis [Recovered/Resolved]
  - Rash maculo-papular [Recovered/Resolved]
